FAERS Safety Report 25006320 (Version 1)
Quarter: 2025Q1

REPORT INFORMATION
  Report Type: Report from Study
  Country: US (occurrence: US)
  Receive Date: 20250224
  Receipt Date: 20250224
  Transmission Date: 20250409
  Serious: No
  Sender: MERCK KGAA
  Company Number: US-Merck Healthcare KGaA-2025007904

PATIENT
  Age: 65 Year
  Sex: Female

DRUGS (3)
  1. REBIF [Suspect]
     Active Substance: INTERFERON BETA-1A
     Indication: Product used for unknown indication
     Route: 058
     Dates: start: 20240828
  2. LEVOTHYROXINE [Suspect]
     Active Substance: LEVOTHYROXINE
     Indication: Product used for unknown indication
  3. LEVOTHYROXINE [Suspect]
     Active Substance: LEVOTHYROXINE

REACTIONS (7)
  - Feeling cold [Unknown]
  - Headache [Unknown]
  - Palpitations [Unknown]
  - Dyspnoea [Unknown]
  - Dyspepsia [Unknown]
  - Feeling abnormal [Recovering/Resolving]
  - Overdose [Unknown]

NARRATIVE: CASE EVENT DATE: 20241201
